FAERS Safety Report 19212272 (Version 1)
Quarter: 2021Q2

REPORT INFORMATION
  Report Type: Report from Study
  Country: PL (occurrence: PL)
  Receive Date: 20210504
  Receipt Date: 20210504
  Transmission Date: 20210717
  Serious: Yes (Hospitalization)
  Sender: FDA-Public Use
  Company Number: NVSC2021PL094224

PATIENT
  Age: 66 Year
  Sex: Female

DRUGS (2)
  1. ATORVASTATIN [Suspect]
     Active Substance: ATORVASTATIN
     Indication: HYPERCHOLESTEROLAEMIA
     Dosage: UNK (MEDIUM INTENSITY)
     Route: 065
  2. SIMVASTATIN. [Suspect]
     Active Substance: SIMVASTATIN
     Indication: HYPERCHOLESTEROLAEMIA
     Dosage: UNK (LOW INTENSITY)
     Route: 065

REACTIONS (2)
  - Adverse drug reaction [Unknown]
  - Drug ineffective [Unknown]
